FAERS Safety Report 5676685-9 (Version None)
Quarter: 2008Q1

REPORT INFORMATION
  Report Type: 
  Country: None (occurrence: None)
  Receive Date: 20080321
  Receipt Date: 20080321
  Transmission Date: 20080703
  Serious: Yes (Life-Threatening)
  Sender: FDA-Public Use
  Company Number: None

PATIENT
  Age: 50 Year
  Sex: Male

DRUGS (1)
  1. IOPROMIDE [Suspect]
     Dosage: 390ML ONCE IV
     Route: 042
     Dates: start: 20080213, end: 20080213

REACTIONS (9)
  - ANAPHYLACTIC REACTION [None]
  - CHILLS [None]
  - CONTRAST MEDIA REACTION [None]
  - HYPOTENSION [None]
  - HYPOXIA [None]
  - RASH [None]
  - RESPIRATORY DEPRESSION [None]
  - RESPIRATORY DISTRESS [None]
  - URTICARIA [None]
